FAERS Safety Report 12349215 (Version 6)
Quarter: 2016Q2

REPORT INFORMATION
  Report Type: Report from Study
  Country: PT (occurrence: PT)
  Receive Date: 20160509
  Receipt Date: 20160622
  Transmission Date: 20160815
  Serious: Yes (Other)
  Sender: FDA-Public Use
  Company Number: PHHY2013PT129104

PATIENT
  Age: 43 Year
  Sex: Female

DRUGS (5)
  1. DIAZEPAM. [Concomitant]
     Active Substance: DIAZEPAM
     Indication: ANXIETY
     Route: 065
  2. CIPRALEX [Concomitant]
     Active Substance: ESCITALOPRAM OXALATE
     Indication: ANXIETY
     Route: 065
  3. GILENYA [Suspect]
     Active Substance: FINGOLIMOD HYDROCHLORIDE
     Indication: MULTIPLE SCLEROSIS
     Dosage: 0.5 MG, QD
     Route: 048
     Dates: start: 20120502
  4. SERTRALINE [Concomitant]
     Active Substance: SERTRALINE HYDROCHLORIDE
     Indication: ANXIETY
     Route: 065
  5. BISOPROLOL [Suspect]
     Active Substance: BISOPROLOL
     Indication: PRODUCT USED FOR UNKNOWN INDICATION
     Dosage: 5 MG, QD
     Route: 048
     Dates: start: 20160418

REACTIONS (12)
  - Hypoxia [Unknown]
  - Dizziness [Unknown]
  - Heart rate increased [Recovering/Resolving]
  - Insomnia [Not Recovered/Not Resolved]
  - Acute myocardial infarction [Unknown]
  - Fatigue [Unknown]
  - Dyspnoea [Recovered/Resolved]
  - Chest pain [Recovered/Resolved]
  - Malaise [Recovered/Resolved]
  - Pain in extremity [Unknown]
  - Hypoacusis [Recovering/Resolving]
  - Hypoaesthesia [Recovered/Resolved]

NARRATIVE: CASE EVENT DATE: 20131111
